FAERS Safety Report 13352591 (Version 1)
Quarter: 2017Q1

REPORT INFORMATION
  Report Type: Spontaneous
  Country: GB (occurrence: GB)
  Receive Date: 20170320
  Receipt Date: 20170320
  Transmission Date: 20170429
  Serious: Yes (Disabling, Other)
  Sender: FDA-Public Use
  Company Number: GB-BAYER-2017-045516

PATIENT
  Age: 22 Year
  Sex: Female
  Weight: 66.67 kg

DRUGS (4)
  1. DULOXETINE. [Concomitant]
     Active Substance: DULOXETINE
     Indication: PANIC ATTACK
  2. DULOXETINE. [Concomitant]
     Active Substance: DULOXETINE
     Indication: DEPRESSION
     Dosage: 60 MG, QD
     Dates: start: 201204
  3. DULOXETINE. [Concomitant]
     Active Substance: DULOXETINE
     Indication: GENERALISED ANXIETY DISORDER
  4. QLAIRA FILM-COATED TABLETS [Suspect]
     Active Substance: DIENOGEST\ESTRADIOL VALERATE
     Indication: MENORRHAGIA
     Dosage: UNK
     Route: 048
     Dates: start: 20141001, end: 20141120

REACTIONS (9)
  - Condition aggravated [Unknown]
  - Alopecia [Unknown]
  - Body temperature fluctuation [Unknown]
  - Palpitations [Recovered/Resolved]
  - Panic attack [Recovered/Resolved]
  - Anxiety [Recovered/Resolved]
  - Dyspnoea [Unknown]
  - Feeling abnormal [Unknown]
  - Tremor [Unknown]

NARRATIVE: CASE EVENT DATE: 20141017
